FAERS Safety Report 9363606 (Version 5)
Quarter: 2013Q3

REPORT INFORMATION
  Report Type: Spontaneous
  Country: JP (occurrence: JP)
  Receive Date: 20130624
  Receipt Date: 20130903
  Transmission Date: 20140515
  Serious: Yes (Death, Life-Threatening, Hospitalization)
  Sender: FDA-Public Use
  Company Number: JP-UCBSA-089690

PATIENT
  Age: 75 Year
  Sex: Female
  Weight: 48 kg

DRUGS (18)
  1. CIMZIA [Suspect]
     Indication: RHEUMATOID ARTHRITIS
     Dosage: 200MG SYRINGES
     Route: 058
     Dates: start: 20130416, end: 20130514
  2. PREDONINE [Suspect]
     Indication: RHEUMATOID ARTHRITIS
     Dosage: DAILY DOSE: 10MG
     Route: 048
     Dates: start: 20071218, end: 20130607
  3. PROGRAF [Suspect]
     Indication: RHEUMATOID ARTHRITIS
     Dosage: 1 MG
     Route: 048
     Dates: start: 20120824, end: 20130605
  4. BREDININ [Suspect]
     Indication: RHEUMATOID ARTHRITIS
     Dosage: 200 MG
     Route: 048
     Dates: start: 20080122, end: 20130605
  5. AZULFIDINE-EN [Concomitant]
     Indication: RHEUMATOID ARTHRITIS
     Dosage: 1000 MG
     Route: 048
     Dates: start: 20071218, end: 20130607
  6. CELECOX [Concomitant]
     Indication: RHEUMATOID ARTHRITIS
     Dosage: 400 MG
     Route: 048
     Dates: start: 20071218, end: 20130603
  7. MEVALOTIN [Concomitant]
     Indication: HYPERLIPIDAEMIA
     Dosage: 10 MG
     Route: 048
     Dates: start: 20071218, end: 20130607
  8. BIOFERMIN [Concomitant]
     Indication: DIARRHOEA
     Dosage: 3 G
     Route: 048
     Dates: start: 20090730, end: 20130607
  9. METHYCOBAL [Concomitant]
     Indication: CEREBRAL INFARCTION
     Dosage: 1500 MCG
     Route: 048
     Dates: start: 20091027, end: 20130607
  10. BAYASPIRIN [Concomitant]
     Indication: CEREBRAL INFARCTION
     Dosage: 100 MG
     Route: 048
     Dates: start: 20091020, end: 20130607
  11. KLARICID [Concomitant]
     Indication: INFECTION PROPHYLAXIS
     Dosage: 200 MG
     Route: 048
     Dates: start: 20090703, end: 20130523
  12. ALINAMIN-F [Concomitant]
     Indication: CEREBRAL INFARCTION
     Dosage: 75 MG
     Route: 048
     Dates: start: 20111124, end: 20130607
  13. FEBURIC [Concomitant]
     Indication: HYPERURICAEMIA
     Dosage: 10 MG
     Route: 048
     Dates: start: 20130321, end: 20130607
  14. BONOTEO [Concomitant]
     Indication: OSTEOPOROSIS
     Route: 048
     Dates: start: 20121115, end: 20130522
  15. TOCILIZUMAB [Concomitant]
     Dates: start: 20080619
  16. CEFMETAZOLE [Concomitant]
     Dosage: 2 G
  17. PIPERACILLIN [Concomitant]
     Dates: start: 20130528
  18. MEROPENEM HYDRATE [Concomitant]
     Dates: start: 20130603

REACTIONS (2)
  - Sepsis [Fatal]
  - Cellulitis [Not Recovered/Not Resolved]
